FAERS Safety Report 5534670-1 (Version None)
Quarter: 2007Q4

REPORT INFORMATION
  Report Type: 
  Country: None (occurrence: None)
  Receive Date: 20071205
  Receipt Date: 20071129
  Transmission Date: 20080405
  Serious: Yes (Hospitalization, Disabling)
  Sender: FDA-Public Use
  Company Number: GB-SANOFI-SYNTHELABO-D01200708161

PATIENT
  Sex: Male
  Weight: 106.5 kg

DRUGS (4)
  1. LEUCOVORIN CALCIUM [Suspect]
     Route: 042
     Dates: start: 20070920, end: 20070920
  2. FLUOROURACIL [Suspect]
     Dosage: 400 MG/M?, IV BOLUS D1+D2 FOLLOWED BY 5-FU 2400 MG/M? OVER 46-HOUR CONTINUOUS INFUSION.
     Route: 042
     Dates: start: 20070919, end: 20070921
  3. OXALIPLATIN [Suspect]
     Route: 042
     Dates: start: 20070919, end: 20070919
  4. SR57746 OR PLACEBO [Suspect]
     Indication: NEUROLOGICAL SYMPTOM
     Route: 048
     Dates: start: 20070115, end: 20071022

REACTIONS (10)
  - ABDOMINAL PAIN [None]
  - AGGRESSION [None]
  - BALANCE DISORDER [None]
  - CATHETER RELATED INFECTION [None]
  - CONFUSIONAL STATE [None]
  - DRUG TOXICITY [None]
  - DYSARTHRIA [None]
  - MALIGNANT NEOPLASM PROGRESSION [None]
  - MOBILITY DECREASED [None]
  - MYOPATHY [None]
